FAERS Safety Report 17573533 (Version 1)
Quarter: 2020Q1

REPORT INFORMATION
  Report Type: Spontaneous
  Country: FR (occurrence: FR)
  Receive Date: 20200323
  Receipt Date: 20200323
  Transmission Date: 20200409
  Serious: Yes (Hospitalization)
  Sender: FDA-Public Use
  Company Number: FR-MYLANLABS-2020M1030091

PATIENT
  Age: 82 Year
  Sex: Female
  Weight: 53 kg

DRUGS (7)
  1. PANTOPRAZOLE [Concomitant]
     Active Substance: PANTOPRAZOLE
     Dosage: 20 MILLIGRAM, QD
     Route: 048
     Dates: start: 2015
  2. KARDEGIC [Concomitant]
     Active Substance: ASPIRIN DL-LYSINE
     Dosage: 75 MILLIGRAM, QD
     Route: 048
     Dates: start: 2015
  3. FUROSEMIDE. [Concomitant]
     Active Substance: FUROSEMIDE
     Dosage: 20 MILLIGRAM, QD
     Route: 048
     Dates: start: 2015
  4. BISOPROLOL                         /00802602/ [Concomitant]
     Active Substance: BISOPROLOL
     Dosage: 2.5 MILLIGRAM, BID
     Route: 048
     Dates: start: 2015
  5. ACTILYSE [Interacting]
     Active Substance: ALTEPLASE
     Indication: THROMBOLYSIS
     Dosage: 5 MB BOLUS PUIS 48MG SUR 1H
     Route: 042
     Dates: start: 20200203, end: 20200203
  6. RAMIPRIL. [Suspect]
     Active Substance: RAMIPRIL
     Indication: PRODUCT USED FOR UNKNOWN INDICATION
     Dosage: 5 MILLIGRAM, QD
     Route: 048
     Dates: start: 2015, end: 20200204
  7. ALPRAZOLAM. [Concomitant]
     Active Substance: ALPRAZOLAM
     Dosage: 0.25 MILLIGRAM, BID
     Route: 048
     Dates: start: 2015

REACTIONS (2)
  - Drug interaction [Unknown]
  - Angioedema [Recovered/Resolved]

NARRATIVE: CASE EVENT DATE: 20200203
